FAERS Safety Report 13164857 (Version 2)
Quarter: 2017Q1

REPORT INFORMATION
  Report Type: Report from Study
  Country: None (occurrence: AU)
  Receive Date: 20170130
  Receipt Date: 20170222
  Transmission Date: 20170428
  Serious: Yes (Hospitalization)
  Sender: FDA-Public Use
  Company Number: AU-ABBVIE-17P-008-1856666-00

PATIENT
  Age: 68 Year
  Sex: Male

DRUGS (1)
  1. LUCRIN DEPOT [Suspect]
     Active Substance: LEUPROLIDE ACETATE
     Indication: PROSTATE CANCER
     Route: 030

REACTIONS (3)
  - Cystitis [Recovering/Resolving]
  - Urinary retention postoperative [Unknown]
  - Transurethral prostatectomy [Unknown]

NARRATIVE: CASE EVENT DATE: 20170123
